FAERS Safety Report 7206855-X (Version None)
Quarter: 2010Q4

REPORT INFORMATION
  Report Type: 
  Country: None (occurrence: None)
  Receive Date: 20101217
  Receipt Date: 20101203
  Transmission Date: 20110411
  Serious: Yes (Hospitalization)
  Sender: FDA-Public Use
  Company Number: 0215282

PATIENT
  Sex: Male

DRUGS (1)
  1. TACHOSIL [Suspect]
     Indication: PNEUMOTHORAX
     Dosage: 1 SPONGE 9,5 X 4,8 CM (1 DOSAGE FORMS) TOPICAL
     Route: 061
     Dates: start: 20100101, end: 20100101

REACTIONS (3)
  - OFF LABEL USE [None]
  - PNEUMOTHORAX [None]
  - TREATMENT FAILURE [None]
